FAERS Safety Report 6509616-X (Version None)
Quarter: 2009Q4

REPORT INFORMATION
  Report Type: 
  Country: None (occurrence: None)
  Receive Date: 20091222
  Receipt Date: 20091216
  Transmission Date: 20100525
  Serious: Yes (Death, Hospitalization)
  Sender: FDA-Public Use
  Company Number: DE-ROCHE-665175

PATIENT
  Sex: Female
  Weight: 60 kg

DRUGS (6)
  1. XELODA [Suspect]
     Dosage: DAYS 1-14 OF EACH CYCLE.
     Route: 048
     Dates: start: 20090911, end: 20091022
  2. TYVERB [Suspect]
     Route: 048
     Dates: start: 20090911, end: 20091022
  3. BONDRONAT [Concomitant]
     Route: 042
     Dates: start: 20081001
  4. DELIX [Concomitant]
     Indication: HYPERTENSION
     Dates: start: 20090201
  5. FORTECORTIN [Concomitant]
     Indication: PROPHYLAXIS
     Route: 048
     Dates: start: 20091002
  6. LOPEDIUM [Concomitant]
     Indication: DIARRHOEA
     Dosage: TAKEN INTERMITTENTLY.
     Route: 048

REACTIONS (5)
  - GASTRIC PERFORATION [None]
  - GASTRIC ULCER [None]
  - MULTI-ORGAN FAILURE [None]
  - PERITONITIS [None]
  - POST PROCEDURAL HAEMORRHAGE [None]
